FAERS Safety Report 10593667 (Version 1)
Quarter: 2014Q4

REPORT INFORMATION
  Report Type: Spontaneous
  Country: US (occurrence: US)
  Receive Date: 20141119
  Receipt Date: 20141119
  Transmission Date: 20150529
  Serious: No
  Sender: FDA-Public Use
  Company Number: US-BIOMARINAP-US-2014-104413

PATIENT
  Age: 18 Year
  Sex: Female
  Weight: 44.54 kg

DRUGS (1)
  1. VIMIZIM [Suspect]
     Active Substance: ELOSULFASE ALFA
     Indication: MUCOPOLYSACCHARIDOSIS IV
     Dosage: 85 MG, QW
     Route: 042

REACTIONS (2)
  - Pyrexia [Unknown]
  - Ear infection [Unknown]

NARRATIVE: CASE EVENT DATE: 20141015
